FAERS Safety Report 5384318-4 (Version None)
Quarter: 2007Q3

REPORT INFORMATION
  Report Type: 
  Country: None (occurrence: None)
  Receive Date: 20070710
  Receipt Date: 20060720
  Transmission Date: 20080115
  Serious: Yes (Disabling)
  Sender: FDA-Public Use
  Company Number: 2006-01894

PATIENT
  Age: 80 Year
  Sex: Male
  Weight: 85.3 kg

DRUGS (7)
  1. VELCADE [Suspect]
     Indication: MANTLE CELL LYMPHOMA
     Dosage: 1.30 MG/M2, INTRAVENOUS
     Route: 042
     Dates: start: 20060612, end: 20060619
  2. PERCOCET [Concomitant]
  3. LIPITOR [Concomitant]
  4. ALLEGRA [Concomitant]
  5. COREG [Concomitant]
  6. ASPIRIN [Concomitant]
  7. ZOFRAN [Concomitant]

REACTIONS (1)
  - HYPONATRAEMIA [None]
